FAERS Safety Report 18431297 (Version 1)
Quarter: 2020Q4

REPORT INFORMATION
  Report Type: Spontaneous
  Country: US (occurrence: US)
  Receive Date: 20201027
  Receipt Date: 20201027
  Transmission Date: 20210114
  Serious: Yes (Hospitalization)
  Sender: FDA-Public Use
  Company Number: None

PATIENT
  Age: 63 Year
  Sex: Female
  Weight: 52.65 kg

DRUGS (1)
  1. IBRANCE [Suspect]
     Active Substance: PALBOCICLIB
     Indication: BREAST CANCER METASTATIC
     Route: 048
     Dates: start: 20200315, end: 20200925

REACTIONS (5)
  - Heart rate increased [None]
  - Dyspnoea [None]
  - Hepatic vein thrombosis [None]
  - Oxygen saturation decreased [None]
  - Haemolytic anaemia [None]

NARRATIVE: CASE EVENT DATE: 20201003
